FAERS Safety Report 4452302-0 (Version None)
Quarter: 2004Q3

REPORT INFORMATION
  Report Type: 
  Country: None (occurrence: None)
  Receive Date: 20040917
  Receipt Date: 20040811
  Transmission Date: 20050211
  Serious: Yes (Death, Hospitalization)
  Sender: FDA-Public Use
  Company Number: GB-ROCHE-377353

PATIENT
  Age: 67 Year
  Sex: Female
  Weight: 65.8 kg

DRUGS (1)
  1. CAPECITABINE [Suspect]
     Indication: OVARIAN CANCER
     Route: 048
     Dates: start: 20040302, end: 20040305

REACTIONS (7)
  - CARDIAC ENZYMES INCREASED [None]
  - CHEST DISCOMFORT [None]
  - DILATATION VENTRICULAR [None]
  - ELECTROCARDIOGRAM ST SEGMENT ELEVATION [None]
  - LEFT VENTRICULAR FAILURE [None]
  - PULMONARY OEDEMA [None]
  - THERAPY NON-RESPONDER [None]
